FAERS Safety Report 8767341 (Version 15)
Quarter: 2014Q3

REPORT INFORMATION
  Report Type: Report from Study
  Country: FR (occurrence: FR)
  Receive Date: 20120904
  Receipt Date: 20140903
  Transmission Date: 20150326
  Serious: Yes (Life-Threatening, Hospitalization, Other)
  Sender: FDA-Public Use
  Company Number: FR-BRISTOL-MYERS SQUIBB COMPANY-16769473

PATIENT
  Age: 77 Year
  Sex: Female

DRUGS (21)
  1. PIASCLEDINE [Concomitant]
     Active Substance: AVOCADO OIL\SOYBEAN OIL
     Indication: PREMEDICATION
     Route: 048
     Dates: start: 20030627
  2. DEXCHLORPHENIRAMINE [Concomitant]
     Active Substance: DEXCHLORPHENIRAMINE
     Dates: start: 20120722, end: 20120722
  3. IPILIMUMAB [Suspect]
     Active Substance: IPILIMUMAB
     Indication: METASTATIC MALIGNANT MELANOMA
     Route: 042
     Dates: start: 20120510, end: 20120711
  4. LYSINE ACETYLSALICYLATE [Concomitant]
     Active Substance: ASPIRIN LYSINE
     Dosage: JAN2004
     Route: 048
     Dates: start: 200001, end: 20120727
  5. INSULIN LISPRO [Concomitant]
     Active Substance: INSULIN LISPRO
     Dates: start: 20120724, end: 20120903
  6. ESOMEPRAZOLE [Concomitant]
     Active Substance: ESOMEPRAZOLE
     Indication: PREMEDICATION
     Route: 048
  7. SERTRALINE [Concomitant]
     Active Substance: SERTRALINE HYDROCHLORIDE
     Indication: PREMEDICATION
     Route: 048
     Dates: start: 1990
  8. LOPERAMIDE [Concomitant]
     Active Substance: LOPERAMIDE
     Dates: end: 20120903
  9. AMPHOTERICIN B. [Concomitant]
     Active Substance: AMPHOTERICIN B
     Dates: start: 20120809, end: 20120903
  10. FUROSEMIDE. [Concomitant]
     Active Substance: FUROSEMIDE
     Dates: start: 20120727, end: 20120727
  11. FOLIC ACID. [Concomitant]
     Active Substance: FOLIC ACID
     Dates: start: 20120721
  12. DAFLON [Concomitant]
     Active Substance: DIOSMIN\HESPERIDIN
     Indication: PREMEDICATION
     Route: 048
  13. VALSARTAN. [Concomitant]
     Active Substance: VALSARTAN
     Route: 048
     Dates: start: 20070320
  14. ONDANSETRON [Concomitant]
     Active Substance: ONDANSETRON
     Dates: start: 20120815, end: 20120903
  15. PARACETAMOL [Concomitant]
     Active Substance: ACETAMINOPHEN
     Indication: PREMEDICATION
     Route: 048
  16. METFORMINE CHLORHYDRATE [Concomitant]
     Indication: PREMEDICATION
     Dosage: 1995-ONGOIN:850MG
     Route: 048
     Dates: start: 1990
  17. HYDROCHLOROTHIAZIDE. [Concomitant]
     Active Substance: HYDROCHLOROTHIAZIDE
     Indication: PREMEDICATION
     Route: 048
     Dates: start: 20070320, end: 20120809
  18. METOCLOPRAMIDE. [Concomitant]
     Active Substance: METOCLOPRAMIDE
  19. KETOPROFEN. [Concomitant]
     Active Substance: KETOPROFEN
     Indication: PREMEDICATION
     Route: 048
     Dates: end: 20120718
  20. NAFTIDROFURYL OXALATE [Concomitant]
     Active Substance: NAFRONYL OXALATE
     Indication: PREMEDICATION
     Dosage: 12OCT2006
     Route: 048
     Dates: start: 20001013
  21. IRBESARTAN. [Concomitant]
     Active Substance: IRBESARTAN
     Dates: start: 20070320, end: 20120809

REACTIONS (4)
  - Neutropenia [Recovered/Resolved]
  - Hyperthyroidism [Recovered/Resolved]
  - Septic shock [Recovered/Resolved]
  - Pancytopenia [Recovered/Resolved]

NARRATIVE: CASE EVENT DATE: 20120711
